FAERS Safety Report 14657019 (Version 1)
Quarter: 2018Q1

REPORT INFORMATION
  Report Type: Spontaneous
  Country: US (occurrence: US)
  Receive Date: 20180319
  Receipt Date: 20180319
  Transmission Date: 20180509
  Serious: No
  Sender: FDA-Public Use
  Company Number: US-GE HEALTHCARE LIFE SCIENCES-2018CSU000732

PATIENT
  Age: 64 Year
  Sex: Male
  Weight: 95.23 kg

DRUGS (2)
  1. BARIUM [Suspect]
     Active Substance: BARIUM
     Indication: GASTRIC CANCER
     Dosage: UNK
     Route: 048
     Dates: start: 20180215, end: 20180215
  2. OMNIPAQUE [Suspect]
     Active Substance: IOHEXOL
     Indication: GASTRIC CANCER
     Dosage: 150 ML, SINGLE
     Route: 042
     Dates: start: 20180215, end: 20180215

REACTIONS (2)
  - Cough [Recovered/Resolved]
  - Pruritus [Recovered/Resolved]

NARRATIVE: CASE EVENT DATE: 20180215
